FAERS Safety Report 22332686 (Version 1)
Quarter: 2023Q2

REPORT INFORMATION
  Report Type: Spontaneous
  Country: US (occurrence: US)
  Receive Date: 20230517
  Receipt Date: 20230517
  Transmission Date: 20230722
  Serious: No
  Sender: FDA-Public Use
  Company Number: US-PFIZER INC-PV202300086638

PATIENT
  Sex: Male

DRUGS (2)
  1. GEMCITABINE HYDROCHLORIDE [Suspect]
     Active Substance: GEMCITABINE HYDROCHLORIDE
     Indication: Ductal adenocarcinoma of pancreas
     Dosage: UNK, CYCLIC (GEMCITABINE: EVERY WEEK FOR FIRST 3 WEEKS OF 4-WEEK CYCLE)
  2. CISPLATIN [Suspect]
     Active Substance: CISPLATIN
     Indication: Ductal adenocarcinoma of pancreas
     Dosage: UNK, CYCLIC (EVERY WEEK FOR FIRST 2 WEEKS OF 3-WEEK CYCLE)

REACTIONS (2)
  - Neoplasm progression [Unknown]
  - Off label use [Unknown]
